FAERS Safety Report 10070855 (Version 1)
Quarter: 2014Q2

REPORT INFORMATION
  Report Type: Report from Study
  Country: NL (occurrence: NL)
  Receive Date: 20140410
  Receipt Date: 20140410
  Transmission Date: 20141212
  Serious: Yes (Hospitalization)
  Sender: FDA-Public Use
  Company Number: PHHY2014NL043384

PATIENT
  Age: 74 Year
  Sex: Male

DRUGS (4)
  1. ZOMETA [Suspect]
     Indication: PROSTATE CANCER METASTATIC
     Dosage: 4MG/100ML, ONCE EVERY 4 WEEKS
     Route: 042
  2. ZOMETA [Suspect]
     Dosage: 4MG/100ML, ONCE EVERY 4 WEEKS
     Route: 042
     Dates: start: 20110802
  3. ZOMETA [Suspect]
     Dosage: 4MG/100ML, ONCE EVERY 4 WEEKS
     Route: 042
     Dates: start: 20140211
  4. ZOMETA [Suspect]
     Dosage: 4MG/100ML, ONCE EVERY 4 WEEKS
     Route: 042
     Dates: start: 20140311

REACTIONS (3)
  - Pneumonia [Not Recovered/Not Resolved]
  - Pyrexia [Recovered/Resolved]
  - Fatigue [Not Recovered/Not Resolved]
